FAERS Safety Report 7633906-0 (Version None)
Quarter: 2011Q3

REPORT INFORMATION
  Report Type: 
  Country: None (occurrence: None)
  Receive Date: 20110725
  Receipt Date: 20110713
  Transmission Date: 20111222
  Serious: Yes (Other)
  Sender: FDA-Public Use
  Company Number: CA-UCBSA-037262

PATIENT
  Sex: Female
  Weight: 65.77 kg

DRUGS (11)
  1. FOLIC ACID [Concomitant]
     Indication: RHEUMATOID ARTHRITIS
     Route: 048
     Dates: start: 20090615
  2. CELEBREX [Concomitant]
     Indication: RHEUMATOID ARTHRITIS
     Dosage: BID
     Route: 048
     Dates: start: 20101201
  3. DESYPRAMINE [Concomitant]
     Indication: DEPRESSION
     Route: 048
  4. CIMZIA [Suspect]
     Indication: RHEUMATOID ARTHRITIS
     Route: 058
     Dates: start: 20110323
  5. PLAQUENIL [Concomitant]
     Route: 048
     Dates: start: 20110101
  6. MIRAPEX [Concomitant]
     Indication: RESTLESS LEGS SYNDROME
     Route: 048
     Dates: start: 20080101
  7. METHOTREXATE [Concomitant]
     Indication: RHEUMATOID ARTHRITIS
     Route: 048
     Dates: start: 20090615, end: 20110101
  8. PLAQUENIL [Concomitant]
     Indication: RHEUMATOID ARTHRITIS
     Route: 048
     Dates: start: 20091103, end: 20110101
  9. METHOTREXATE [Concomitant]
     Route: 058
     Dates: start: 20110101
  10. PREDNISONE [Concomitant]
     Indication: RHEUMATOID ARTHRITIS
     Dosage: DOSE PER INTAKE: VARIABLE
     Route: 048
     Dates: start: 20110311
  11. PANTOPRAZOLE SODIUM [Concomitant]
     Route: 048

REACTIONS (2)
  - OEDEMA PERIPHERAL [None]
  - EAR INFECTION [None]
